FAERS Safety Report 13525525 (Version 4)
Quarter: 2017Q2

REPORT INFORMATION
  Report Type: Spontaneous
  Country: US (occurrence: US)
  Receive Date: 20170508
  Receipt Date: 20170626
  Transmission Date: 20170830
  Serious: Yes (Hospitalization, Other)
  Sender: FDA-Public Use
  Company Number: US-AMGEN-USASP2017067371

PATIENT
  Age: 14 Year
  Sex: Male
  Weight: 43 kg

DRUGS (19)
  1. PROCRIT [Suspect]
     Active Substance: ERYTHROPOIETIN
     Indication: NEPHROGENIC ANAEMIA
     Dosage: 10000 UNIT, 3 TIMES/WK (5000 UNITS) UNK
     Route: 065
     Dates: start: 20170322
  2. PROCRIT [Suspect]
     Active Substance: ERYTHROPOIETIN
     Dosage: 3000 UNIT, 3 TIMES/WK
     Route: 065
     Dates: start: 2017
  3. MYFORTIC [Concomitant]
     Active Substance: MYCOPHENOLATE SODIUM
     Dosage: 540 MG, BID
     Route: 048
     Dates: start: 20141120
  4. CONCERTA [Concomitant]
     Active Substance: METHYLPHENIDATE HYDROCHLORIDE
     Dosage: 54 MG, QD (EVERY MORNING)
     Dates: start: 201411
  5. CONCERTA [Concomitant]
     Active Substance: METHYLPHENIDATE HYDROCHLORIDE
     Dosage: 54 MG, QD
     Route: 048
     Dates: start: 20170419
  6. CARDURA [Concomitant]
     Active Substance: DOXAZOSIN MESYLATE
     Dosage: 4 MG, QD
     Dates: start: 201603
  7. FERROUS SULFATE. [Concomitant]
     Active Substance: FERROUS SULFATE
     Dosage: 325 MG, QD
     Dates: start: 201612
  8. EPOGEN [Suspect]
     Active Substance: ERYTHROPOIETIN
     Dosage: UNK
     Route: 065
     Dates: start: 20170426
  9. PROCRIT [Suspect]
     Active Substance: ERYTHROPOIETIN
     Dosage: 5000 UNIT, 3 TIMES/WK
     Route: 065
     Dates: start: 20170405
  10. PROGRAF [Concomitant]
     Active Substance: TACROLIMUS\TACROLIMUS ANHYDROUS
     Dosage: 3 MG, BID
     Route: 048
     Dates: start: 20160509
  11. EPOGEN [Suspect]
     Active Substance: ERYTHROPOIETIN
     Indication: NEPHROGENIC ANAEMIA
     Dosage: 2700 UNIT, QWK
     Route: 065
  12. PREDNISONE. [Concomitant]
     Active Substance: PREDNISONE
     Indication: IMMUNOSUPPRESSANT DRUG THERAPY
     Dosage: 5 MG, QD
     Dates: start: 201411
  13. EPOGEN [Suspect]
     Active Substance: ERYTHROPOIETIN
     Dosage: 3000 UNIT, 3 TIMES/WK
     Route: 058
     Dates: start: 20170317, end: 20170322
  14. PEPCID [Concomitant]
     Active Substance: FAMOTIDINE
     Dosage: 20 MG, QD (EVERY MORNING)
     Dates: start: 201612
  15. PROGRAF [Concomitant]
     Active Substance: TACROLIMUS\TACROLIMUS ANHYDROUS
     Indication: IMMUNOSUPPRESSANT DRUG THERAPY
     Dosage: 3.5 MG, Q12H (EVERY 12 HOURS)
     Dates: start: 201411
  16. PREDNISONE. [Concomitant]
     Active Substance: PREDNISONE
     Dosage: 5 MG, QD
     Route: 048
     Dates: start: 20161115
  17. EPOGEN [Suspect]
     Active Substance: ERYTHROPOIETIN
     Dosage: 10000 UNIT, 3 TIMES/WK (5000 UNITS)
     Route: 065
     Dates: start: 20160504, end: 20170309
  18. MYFORTIC [Concomitant]
     Active Substance: MYCOPHENOLATE SODIUM
     Indication: IMMUNOSUPPRESSANT DRUG THERAPY
     Dosage: 720 MG, Q12H (EVERY 12 HOURS )
     Dates: start: 201411
  19. ENALAPRIL [Concomitant]
     Active Substance: ENALAPRIL
     Indication: PROTEINURIA
     Dosage: 2.5 MG, QD
     Route: 048
     Dates: start: 20170224

REACTIONS (4)
  - Haemoglobin decreased [Unknown]
  - Chronic kidney disease [Not Recovered/Not Resolved]
  - Hypotension [Unknown]
  - Therapy non-responder [Unknown]

NARRATIVE: CASE EVENT DATE: 201704
